FAERS Safety Report 4712197-4 (Version None)
Quarter: 2005Q3

REPORT INFORMATION
  Report Type: 
  Country: None (occurrence: None)
  Receive Date: 20050712
  Receipt Date: 20050707
  Transmission Date: 20060218
  Serious: Yes (Other)
  Sender: FDA-Public Use
  Company Number: DE-BRISTOL-MYERS SQUIBB COMPANY-13029921

PATIENT

DRUGS (1)
  1. NACOM [Suspect]

REACTIONS (1)
  - DEAFNESS [None]
